FAERS Safety Report 20851915 (Version 2)
Quarter: 2022Q3

REPORT INFORMATION
  Report Type: Report from Study
  Country: FR (occurrence: FR)
  Receive Date: 20220520
  Receipt Date: 20220923
  Transmission Date: 20221027
  Serious: Yes (Life-Threatening, Hospitalization)
  Sender: FDA-Public Use
  Company Number: FR-ABBVIE-22K-056-4359740-00

PATIENT
  Age: 67 Year
  Sex: Female
  Weight: 84 kg

DRUGS (10)
  1. UPADACITINIB [Suspect]
     Active Substance: UPADACITINIB
     Indication: Rheumatoid arthritis
     Dosage: 15 MILLIGRAM
     Route: 048
     Dates: start: 20210709, end: 20220408
  2. UPADACITINIB [Suspect]
     Active Substance: UPADACITINIB
     Indication: Rheumatoid arthritis
     Dosage: 15 MILLIGRAM
     Route: 048
     Dates: start: 20220416, end: 20220514
  3. ASPIRIN DL-LYSINE [Concomitant]
     Active Substance: ASPIRIN DL-LYSINE
     Indication: Antiphospholipid syndrome
     Dosage: 100 MILLIGRAM
     Route: 048
     Dates: start: 19920101
  4. IRBESARTAN [Concomitant]
     Active Substance: IRBESARTAN
     Indication: Hypertension
     Dosage: 150 MILLIGRAM
     Route: 048
     Dates: start: 20050101
  5. VICTOZA [Concomitant]
     Active Substance: LIRAGLUTIDE
     Indication: Diabetes mellitus
     Dosage: 0.6 MILLIGRAM
     Route: 058
     Dates: start: 20080101
  6. LEVOTHYROXINE [Concomitant]
     Active Substance: LEVOTHYROXINE
     Indication: Autoimmune thyroiditis
     Dosage: 150 UG
     Route: 048
     Dates: start: 20000101
  7. FLUTICASONE PROPIONATE\SALMETEROL XINAFOATE [Concomitant]
     Active Substance: FLUTICASONE PROPIONATE\SALMETEROL XINAFOATE
     Indication: Asthma
     Dosage: 250 UG
     Route: 055
     Dates: start: 20000101
  8. METHOTREXATE [Concomitant]
     Active Substance: METHOTREXATE
     Indication: Rheumatoid arthritis
     Route: 058
     Dates: start: 20200209, end: 20220107
  9. METHOTREXATE [Concomitant]
     Active Substance: METHOTREXATE
     Indication: Rheumatoid arthritis
     Route: 058
     Dates: start: 20220114, end: 20220523
  10. EZETIMIBE [Concomitant]
     Active Substance: EZETIMIBE
     Indication: Hypertriglyceridaemia
     Dates: start: 20211201

REACTIONS (4)
  - Intestinal ischaemia [Recovered/Resolved]
  - Mesenteric vein thrombosis [Recovering/Resolving]
  - Portal vein thrombosis [Recovered/Resolved]
  - COVID-19 [Recovered/Resolved]

NARRATIVE: CASE EVENT DATE: 20220407
